FAERS Safety Report 9397199 (Version 1)
Quarter: 2013Q3

REPORT INFORMATION
  Report Type: Report from Study
  Country: US (occurrence: US)
  Receive Date: 20130712
  Receipt Date: 20130712
  Transmission Date: 20140515
  Serious: Yes (Other)
  Sender: FDA-Public Use
  Company Number: US-BAYER-2013-082850

PATIENT
  Sex: 0

DRUGS (3)
  1. SORAFENIB (RAF KINASE INHIBITOR) [Suspect]
     Indication: HEPATOCELLULAR CARCINOMA
     Dosage: 200 MG, BID
     Route: 048
  2. TEMSIROLIMUS [Suspect]
     Indication: HEPATOCELLULAR CARCINOMA
     Dosage: 15 MG/WEEKLY
     Route: 042
  3. DIPHENHYDRAMINE [Concomitant]

REACTIONS (1)
  - Urosepsis [Recovered/Resolved]
